FAERS Safety Report 11030709 (Version 1)
Quarter: 2015Q2

REPORT INFORMATION
  Report Type: Spontaneous
  Country: DE (occurrence: DE)
  Receive Date: 20150415
  Receipt Date: 20150415
  Transmission Date: 20150821
  Serious: Yes (Hospitalization)
  Sender: FDA-Public Use
  Company Number: DE-JNJFOC-20150401463

PATIENT
  Age: 19 Year
  Sex: Male

DRUGS (1)
  1. RISPERDAL [Suspect]
     Active Substance: RISPERIDONE
     Indication: PRODUCT USED FOR UNKNOWN INDICATION
     Route: 065

REACTIONS (8)
  - Eczema [Unknown]
  - Varices oesophageal [Recovering/Resolving]
  - Hepatic fibrosis [Recovering/Resolving]
  - Eosinophil count increased [Recovering/Resolving]
  - Gastritis erosive [Unknown]
  - Splenomegaly [Recovering/Resolving]
  - Gastrooesophageal reflux disease [Unknown]
  - Transaminases increased [Recovering/Resolving]

NARRATIVE: CASE EVENT DATE: 201502
